FAERS Safety Report 6608202-0 (Version None)
Quarter: 2010Q1

REPORT INFORMATION
  Report Type: 
  Country: None (occurrence: None)
  Receive Date: 20100301
  Receipt Date: 20100219
  Transmission Date: 20100710
  Serious: Yes (Death)
  Sender: FDA-Public Use
  Company Number: FR-ROCHE-679063

PATIENT
  Sex: Male
  Weight: 82 kg

DRUGS (17)
  1. METHOXY POLYETHYLENE GLYCOL-EPOETIN BETA [Suspect]
     Dosage: FORM: PFS. LAST DOSE PRIOR TO SAE: 11 DEC 09.
     Route: 058
     Dates: start: 20090210
  2. LANTUS [Concomitant]
     Dates: start: 20071208
  3. NOVONORM [Concomitant]
     Dates: start: 20071208
  4. METOPROLOL TARTRATE [Concomitant]
     Dates: start: 20071208
  5. LASILIX [Concomitant]
     Dates: start: 20071208
  6. VASTEN [Concomitant]
     Dates: start: 20071208
  7. NEXIUM [Concomitant]
     Dates: start: 20071208
  8. AMLOR [Concomitant]
     Dates: start: 20070211
  9. DUPHALAC [Concomitant]
     Dates: start: 20071220
  10. ALLOPURINOL [Concomitant]
     Dates: start: 20071208
  11. ESIDRIX [Concomitant]
     Dates: start: 20090902, end: 20090916
  12. DEDROGYL [Concomitant]
     Dates: start: 20090108, end: 20090601
  13. PLAVIX [Concomitant]
     Dates: start: 20090818
  14. LEXOMIL [Concomitant]
     Dates: start: 20091028
  15. ACUPAN [Concomitant]
     Dates: start: 20091028
  16. ILOPROST [Concomitant]
     Dates: start: 20091201
  17. PROZAC [Concomitant]
     Dates: start: 20091028

REACTIONS (1)
  - PERIPHERAL ARTERIAL OCCLUSIVE DISEASE [None]
